FAERS Safety Report 12300871 (Version 1)
Quarter: 2016Q2

REPORT INFORMATION
  Report Type: Spontaneous
  Country: US (occurrence: US)
  Receive Date: 20160425
  Receipt Date: 20160425
  Transmission Date: 20160815
  Serious: No
  Sender: FDA-Public Use
  Company Number: US-CELGENEUS-USA-2016044172

PATIENT
  Sex: Male
  Weight: 73 kg

DRUGS (1)
  1. ISTODAX [Suspect]
     Active Substance: ROMIDEPSIN
     Indication: PERIPHERAL T-CELL LYMPHOMA UNSPECIFIED
     Dosage: 27 MILLIGRAM
     Route: 065
     Dates: start: 20150731

REACTIONS (1)
  - Neuropathy peripheral [Not Recovered/Not Resolved]
